FAERS Safety Report 17639263 (Version 1)
Quarter: 2020Q2

REPORT INFORMATION
  Report Type: Spontaneous
  Country: US (occurrence: US)
  Receive Date: 20200407
  Receipt Date: 20200407
  Transmission Date: 20200713
  Serious: No
  Sender: FDA-Public Use
  Company Number: US-CURIUM-199400097

PATIENT

DRUGS (1)
  1. OCTREOSCAN [Suspect]
     Active Substance: INDIUM IN-111 CHLORIDE\INDIUM IN-111 PENTETREOTIDE
     Indication: RADIOISOTOPE SCAN

REACTIONS (3)
  - Flushing [Unknown]
  - Injection site pruritus [Unknown]
  - Pruritus [Unknown]

NARRATIVE: CASE EVENT DATE: 19941001
